FAERS Safety Report 5974871-1 (Version None)
Quarter: 2008Q4

REPORT INFORMATION
  Report Type: 
  Country: None (occurrence: None)
  Receive Date: 20081202
  Receipt Date: 20081119
  Transmission Date: 20090506
  Serious: Yes (Life-Threatening, Hospitalization)
  Sender: FDA-Public Use
  Company Number: JP-PFIZER INC-2008096875

PATIENT
  Sex: Male

DRUGS (3)
  1. SULPERAZON [Suspect]
     Indication: NASOPHARYNGITIS
     Route: 042
     Dates: start: 20081022, end: 20081022
  2. ISEPACIN [Suspect]
     Indication: NASOPHARYNGITIS
     Dates: start: 20081022, end: 20081022
  3. ORGADRONE [Suspect]
     Indication: NASOPHARYNGITIS
     Dates: start: 20081022, end: 20081022

REACTIONS (1)
  - ANAPHYLACTIC SHOCK [None]
